FAERS Safety Report 9221476 (Version 1)
Quarter: 2013Q2

REPORT INFORMATION
  Report Type: Spontaneous
  Country: US (occurrence: None)
  Receive Date: 20130408
  Receipt Date: 20130408
  Transmission Date: 20140414
  Serious: Yes (Other)
  Sender: FDA-Public Use
  Company Number: None

PATIENT
  Age: 53 Year
  Sex: Female
  Weight: 52.16 kg

DRUGS (1)
  1. ZAFIRLUKAST [Suspect]
     Indication: ASTHMA
     Route: 048
     Dates: start: 20130201, end: 20130404

REACTIONS (4)
  - Nausea [None]
  - Dizziness [None]
  - Jaundice [None]
  - Hepatic enzyme increased [None]
